FAERS Safety Report 11440205 (Version 1)
Quarter: 2015Q3

REPORT INFORMATION
  Report Type: Spontaneous
  Country: US (occurrence: US)
  Receive Date: 20150901
  Receipt Date: 20150901
  Transmission Date: 20151125
  Serious: No
  Sender: FDA-Public Use
  Company Number: US-ROCHE-1099565

PATIENT
  Sex: Female

DRUGS (2)
  1. PEGASYS [Suspect]
     Active Substance: PEGINTERFERON ALFA-2A
     Indication: PRODUCT USED FOR UNKNOWN INDICATION
     Route: 065
     Dates: start: 20120715
  2. RIBAVIRIN. [Suspect]
     Active Substance: RIBAVIRIN
     Indication: PRODUCT USED FOR UNKNOWN INDICATION
     Dosage: DIVIDED DOSES
     Route: 065
     Dates: start: 20120715

REACTIONS (7)
  - Feeling abnormal [Unknown]
  - Crying [Unknown]
  - Feeling of body temperature change [Unknown]
  - Abdominal distension [Unknown]
  - Depression [Unknown]
  - Yellow skin [Unknown]
  - Feeling of despair [Unknown]
